FAERS Safety Report 7691876-3 (Version None)
Quarter: 2011Q3

REPORT INFORMATION
  Report Type: 
  Country: None (occurrence: None)
  Receive Date: 20110815
  Receipt Date: 20110803
  Transmission Date: 20111222
  Serious: Yes (Death)
  Sender: FDA-Public Use
  Company Number: 120743

PATIENT
  Age: 30 Year

DRUGS (1)
  1. BUPRENORPHINE HCL [Suspect]

REACTIONS (1)
  - TOXICITY TO VARIOUS AGENTS [None]
